FAERS Safety Report 8997765 (Version 2)
Quarter: 2013Q1

REPORT INFORMATION
  Report Type: Report from Study
  Country: US (occurrence: US)
  Receive Date: 20130104
  Receipt Date: 20130109
  Transmission Date: 20140127
  Serious: Yes (Hospitalization, Other)
  Sender: FDA-Public Use
  Company Number: US-ABBOTT-12P-163-1029001-00

PATIENT
  Sex: Female

DRUGS (20)
  1. HUMIRA [Suspect]
     Indication: RHEUMATOID ARTHRITIS
     Route: 058
  2. HUMIRA [Suspect]
     Indication: SYSTEMIC LUPUS ERYTHEMATOSUS
  3. COUMADIN [Concomitant]
     Indication: THROMBOSIS
  4. EFFEXOR XR [Concomitant]
     Indication: SYSTEMIC LUPUS ERYTHEMATOSUS
     Route: 048
  5. PLAQUENIL [Concomitant]
     Indication: SYSTEMIC LUPUS ERYTHEMATOSUS
     Route: 048
  6. PLAQUENIL [Concomitant]
     Indication: RHEUMATOID ARTHRITIS
  7. PREDNISONE [Concomitant]
     Indication: SYSTEMIC LUPUS ERYTHEMATOSUS
     Route: 048
  8. TOPAMAX [Concomitant]
     Indication: SYSTEMIC LUPUS ERYTHEMATOSUS
     Route: 048
  9. SKELAXIN [Concomitant]
     Indication: SYSTEMIC LUPUS ERYTHEMATOSUS
     Route: 048
  10. KEPPAR [Concomitant]
     Indication: SYSTEMIC LUPUS ERYTHEMATOSUS
     Route: 048
  11. ENABLEX [Concomitant]
     Indication: SYSTEMIC LUPUS ERYTHEMATOSUS
     Route: 048
  12. VITAMIN D [Concomitant]
     Indication: SYSTEMIC LUPUS ERYTHEMATOSUS
  13. KLOR-CON [Concomitant]
     Indication: BLOOD POTASSIUM DECREASED
     Route: 048
  14. JANTOVEN [Concomitant]
     Indication: SYSTEMIC LUPUS ERYTHEMATOSUS
     Route: 048
  15. MAXALT [Concomitant]
     Indication: MIGRAINE
     Route: 048
  16. LANTUS [Concomitant]
     Indication: DIABETES MELLITUS
     Route: 058
  17. RESTORIL [Concomitant]
     Indication: INSOMNIA
     Route: 048
  18. OXYCODONE [Concomitant]
     Indication: PAIN
     Dosage: 1 EVERY 6 HOURS
     Route: 048
  19. LORTAB [Concomitant]
     Indication: PAIN
     Dosage: 2 TABLETS EVERY 4 HOURS
  20. METHADONE [Concomitant]
     Indication: SYSTEMIC LUPUS ERYTHEMATOSUS
     Route: 048

REACTIONS (4)
  - Thrombosis in device [Unknown]
  - Arthrodesis [Unknown]
  - Thrombosis [Unknown]
  - Drug ineffective [Unknown]
